FAERS Safety Report 11655583 (Version 1)
Quarter: 2015Q4

REPORT INFORMATION
  Report Type: Spontaneous
  Country: JP (occurrence: JP)
  Receive Date: 20151023
  Receipt Date: 20151023
  Transmission Date: 20160304
  Serious: Yes (Other)
  Sender: FDA-Public Use
  Company Number: JP-AKORN PHARMACEUTICALS-2015AKN00606

PATIENT
  Age: 39 Year
  Sex: Female

DRUGS (19)
  1. ATORVASTATIN [Concomitant]
     Active Substance: ATORVASTATIN
     Dosage: UNK TABLETS, UNK
     Dates: start: 20140828
  2. PROGRAF [Concomitant]
     Active Substance: TACROLIMUS\TACROLIMUS ANHYDROUS
     Dosage: UNK CAPSULES, UNK
     Dates: start: 20140408, end: 20140501
  3. EDIROL [Concomitant]
     Active Substance: ELDECALCITOL
     Dosage: UNK CAPSULES, UNK
     Dates: start: 20140408, end: 20140613
  4. PREDNISOLONE. [Concomitant]
     Active Substance: PREDNISOLONE
     Dosage: UNK TABLETS, UNK
     Dates: start: 20140731
  5. MICARDIS [Concomitant]
     Active Substance: TELMISARTAN
     Dosage: UNK TABLETS, UNK
  6. PERSANTIN L [Concomitant]
     Dosage: UNK TABLETS, UNK
     Dates: start: 20140828
  7. BAKTAR [Concomitant]
     Active Substance: SULFAMETHOXAZOLE\TRIMETHOPRIM
     Dosage: UNK TABLETS, UNK
     Dates: start: 20140408, end: 20140501
  8. LASIX [Concomitant]
     Active Substance: FUROSEMIDE
     Dosage: UNK TABLETS, UNK
     Dates: end: 20150501
  9. PREDNISOLONE. [Concomitant]
     Active Substance: PREDNISOLONE
     Dosage: UNK TABLETS, UNK
  10. FUROSEMIDE. [Concomitant]
     Active Substance: FUROSEMIDE
     Dosage: UNK TABLETS, UNK
     Dates: start: 20140502
  11. FAMOTIDINE. [Concomitant]
     Active Substance: FAMOTIDINE
     Dosage: UNK TABLETS, UNK
     Dates: start: 20140217
  12. PERSANTIN [Concomitant]
     Active Substance: DIPYRIDAMOLE
     Dosage: UNK TABLETS, UNK
     Dates: end: 20140828
  13. LIPITOR [Concomitant]
     Active Substance: ATORVASTATIN CALCIUM
     Dosage: UNK TABLETS, UNK
     Dates: end: 20140827
  14. PREDONINE [Concomitant]
     Active Substance: PREDNISOLONE\PREDNISOLONE ACETATE\PREDNISOLONE SODIUM SUCCINATE
     Dosage: UNK TABLETS, UNK
     Dates: start: 20140405
  15. ISCOTIN [Concomitant]
     Active Substance: ISONIAZID
     Dosage: UNK TABLETS, UNK
     Dates: start: 20140408
  16. WARFARIN [Concomitant]
     Active Substance: WARFARIN
     Dosage: UNK TABLETS, UNK
     Dates: start: 20140501
  17. SULFAMETHOXAZOLE AND TRIMETHOPRIM [Concomitant]
     Active Substance: SULFAMETHOXAZOLE\TRIMETHOPRIM
     Dosage: UNK TABLETS, UNK
     Dates: start: 20140502
  18. ZIOPTAN [Suspect]
     Active Substance: TAFLUPROST
     Indication: OPEN ANGLE GLAUCOMA
     Dosage: 1 GTT, BOTH EYES, PER DAY
     Route: 047
     Dates: start: 20131211
  19. FAMOSTAGINE [Concomitant]
     Active Substance: FAMOTIDINE
     Dosage: UNK TABLETS, UNK
     Dates: end: 20140216

REACTIONS (3)
  - Hysterectomy [Not Recovered/Not Resolved]
  - Dry eye [Recovered/Resolved]
  - Hyperlipidaemia [Unknown]

NARRATIVE: CASE EVENT DATE: 20140212
